FAERS Safety Report 19048703 (Version 1)
Quarter: 2021Q1

REPORT INFORMATION
  Report Type: Spontaneous
  Country: US (occurrence: US)
  Receive Date: 20210323
  Receipt Date: 20210323
  Transmission Date: 20210420
  Serious: Yes (Hospitalization, Other)
  Sender: FDA-Public Use
  Company Number: US-PURDUE-USA-2021-0236216

PATIENT
  Age: 22 Month
  Sex: Male

DRUGS (3)
  1. BUPRENORPHINE. [Suspect]
     Active Substance: BUPRENORPHINE
     Indication: PRODUCT USED FOR UNKNOWN INDICATION
     Dosage: UNK
     Route: 065
  2. METHAMPHETAMINE                    /00069101/ [Suspect]
     Active Substance: METHAMPHETAMINE
     Indication: PRODUCT USED FOR UNKNOWN INDICATION
     Dosage: UNK
     Route: 065
  3. AMPHETAMINE [Suspect]
     Active Substance: AMPHETAMINE
     Indication: PRODUCT USED FOR UNKNOWN INDICATION
     Dosage: UNK
     Route: 065

REACTIONS (13)
  - Loss of consciousness [Recovered/Resolved]
  - Toxicity to various agents [Recovering/Resolving]
  - Miosis [Recovered/Resolved]
  - Infantile apnoea [Recovered/Resolved]
  - Acidosis [Unknown]
  - Respiratory syncytial virus infection [Unknown]
  - Cough [Unknown]
  - Tachycardia [Unknown]
  - Dyspnoea [Recovered/Resolved]
  - Hypoxia [Recovering/Resolving]
  - Respiratory rate decreased [Recovered/Resolved]
  - Lethargy [Not Recovered/Not Resolved]
  - Wheezing [Unknown]
